FAERS Safety Report 17247083 (Version 1)
Quarter: 2020Q1

REPORT INFORMATION
  Report Type: Spontaneous
  Country: AF (occurrence: AF)
  Receive Date: 20200107
  Receipt Date: 20200107
  Transmission Date: 20200409
  Serious: Yes (Other)
  Sender: FDA-Public Use
  Company Number: None

PATIENT
  Age: 78 Year
  Sex: Male
  Weight: 95.85 kg

DRUGS (15)
  1. BECLOMETHASONE [Concomitant]
     Active Substance: BECLOMETHASONE
  2. MULTIVITAMIN [Concomitant]
     Active Substance: VITAMINS
  3. CRESTOR [Concomitant]
     Active Substance: ROSUVASTATIN CALCIUM
  4. COENZYME Q-10 [Concomitant]
  5. CALCIUM CARB-CHOLECALCIFEROL [Concomitant]
  6. METOPROLOL. [Concomitant]
     Active Substance: METOPROLOL
  7. NAPROXEN. [Concomitant]
     Active Substance: NAPROXEN
  8. LUPRON [Concomitant]
     Active Substance: LEUPROLIDE ACETATE
  9. ADVAIR DISKUS [Concomitant]
     Active Substance: FLUTICASONE PROPIONATE\SALMETEROL XINAFOATE
  10. FLUTICASONE-SALMETEROL [Concomitant]
  11. XARELTO [Concomitant]
     Active Substance: RIVAROXABAN
  12. ABIRATERONE. [Suspect]
     Active Substance: ABIRATERONE ACETATE
     Indication: PROSTATE CANCER
     Route: 048
     Dates: start: 20190815, end: 20200107
  13. ALBUTEROL HFA [Concomitant]
     Active Substance: ALBUTEROL SULFATE
  14. ACORBIC ACID [Concomitant]
  15. NITROGLYCERIN. [Concomitant]
     Active Substance: NITROGLYCERIN

REACTIONS (1)
  - Disease progression [None]

NARRATIVE: CASE EVENT DATE: 20191213
